FAERS Safety Report 22126011 (Version 1)
Quarter: 2023Q1

REPORT INFORMATION
  Report Type: Spontaneous
  Country: US (occurrence: US)
  Receive Date: 20230322
  Receipt Date: 20230322
  Transmission Date: 20230418
  Serious: No
  Sender: FDA-Public Use
  Company Number: US-ALLERGAN-2211653US

PATIENT
  Age: 76 Year
  Sex: Female

DRUGS (1)
  1. LATISSE [Suspect]
     Active Substance: BIMATOPROST
     Indication: Growth of eyelashes
     Dosage: UNK, QD
     Route: 061

REACTIONS (4)
  - Blepharitis [Recovered/Resolved]
  - Eyelids pruritus [Recovered/Resolved]
  - Eyelid irritation [Recovered/Resolved]
  - Erythema of eyelid [Recovered/Resolved]
